FAERS Safety Report 7825671 (Version 2)
Quarter: 2014Q1

REPORT INFORMATION
  Report Type: Report from Study
  Country: ES (occurrence: ES)
  Receive Date: 20110224
  Receipt Date: 20140326
  Transmission Date: 20141002
  Serious: Yes (Death, Life-Threatening, Other)
  Sender: FDA-Public Use
  Company Number: ES-MPIJNJ-2011-00765

PATIENT
  Sex: 0

DRUGS (4)
  1. VELCADE [Suspect]
     Indication: PLASMA CELL MYELOMA
     Dosage: 2.2 MG, CYCLIC
     Route: 042
     Dates: start: 20090313
  2. VELCADE [Suspect]
     Dosage: 2.1 MG, UNK
     Route: 042
     Dates: start: 20090323, end: 20100416
  3. THALIDOMIDE [Suspect]
     Indication: PLASMA CELL MYELOMA
     Dosage: 100 MG, UNK
     Route: 048
     Dates: start: 20090323, end: 20100705
  4. PREDNISONE [Suspect]
     Indication: PLASMA CELL MYELOMA
     Dosage: UNK
     Route: 065
     Dates: start: 20090608, end: 20100322

REACTIONS (1)
  - Acute myeloid leukaemia [Fatal]
